FAERS Safety Report 4502899-7 (Version None)
Quarter: 2004Q4

REPORT INFORMATION
  Report Type: 
  Country: None (occurrence: None)
  Receive Date: 20041116
  Receipt Date: 20041116
  Transmission Date: 20050328
  Serious: Yes (Hospitalization)
  Sender: FDA-Public Use
  Company Number: None

PATIENT
  Sex: Male
  Weight: 95.9 kg

DRUGS (8)
  1. TEMOZOLOMIDE 472MG/M2 SCHERRING-PLOUGH [Suspect]
     Dosage: 1000 MG ONCE PO
     Route: 048
     Dates: start: 20040604, end: 20040702
  2. 06-BENZYLGUANINE 120MG/M2  (BOLUS INFUSION) ACCESS ONCOLOGY [Suspect]
     Dosage: 240MG IV Q 3 WEEKS
     Route: 040
     Dates: start: 20040604, end: 20040702
  3. 06-BENZYLGUANINE 30MG/M2/DAY  ACCESS ONCOLOGY [Suspect]
     Dosage: 64MG OVER 48 HOUR CONTINUOUS INFUSION VIA PORTABLE PUMP Q 28 DAYS
     Dates: start: 20040604, end: 20040606
  4. 06-BENZYLGUANINE 30MG/M2/DAY  ACCESS ONCOLOGY [Suspect]
     Dosage: 64MG OVER 48 HOUR CONTINUOUS INFUSION VIA PORTABLE PUMP Q 28 DAYS
     Dates: start: 20070702, end: 20040704
  5. KEPPRA [Concomitant]
  6. DECADRON [Concomitant]
  7. ZOLOFT [Concomitant]
  8. TOPROL-XL [Concomitant]

REACTIONS (3)
  - APHASIA [None]
  - COMPLEX PARTIAL SEIZURES [None]
  - NEOPLASM PROGRESSION [None]
